FAERS Safety Report 5613085-1 (Version None)
Quarter: 2008Q1

REPORT INFORMATION
  Report Type: 
  Country: None (occurrence: None)
  Receive Date: 20080204
  Receipt Date: 20080130
  Transmission Date: 20080703
  Serious: Yes (Other)
  Sender: FDA-Public Use
  Company Number: GB-ABBOTT-08P-167-0435910-00

PATIENT
  Age: 31 Year
  Sex: Female
  Weight: 60.5 kg

DRUGS (7)
  1. RITONAVIR SOFT GELATIN CAPSULES [Suspect]
     Indication: RETROVIRAL INFECTION
  2. ENFUVIRTIDE [Suspect]
     Indication: RETROVIRAL INFECTION
  3. ATAZANAVIR SULFATE [Suspect]
     Indication: RETROVIRAL INFECTION
  4. LAMIVUDINE [Suspect]
     Indication: RETROVIRAL INFECTION
  5. VALGANCICLOVIR HCL [Suspect]
     Indication: CYTOMEGALOVIRUS INFECTION
     Dates: start: 20040615
  6. DIDANOSINE [Suspect]
     Indication: RETROVIRAL INFECTION
     Dates: start: 20040901
  7. BACTRIM [Concomitant]
     Indication: PNEUMOCYSTIS JIROVECI PNEUMONIA
     Dates: start: 20040612

REACTIONS (3)
  - ABORTION SPONTANEOUS [None]
  - PLACENTAL INFARCTION [None]
  - UMBILICAL CORD ABNORMALITY [None]
